FAERS Safety Report 10261263 (Version 1)
Quarter: 2014Q2

REPORT INFORMATION
  Report Type: Spontaneous
  Country: US (occurrence: US)
  Receive Date: 20140626
  Receipt Date: 20140626
  Transmission Date: 20141212
  Serious: Yes (Other)
  Sender: FDA-Public Use
  Company Number: US-BAYER-2014-091196

PATIENT
  Age: 73 Year
  Sex: Female
  Weight: 59 kg

DRUGS (1)
  1. PHILLIPS^ MILK OF MAGNESIA LIQUID CHERRY [Suspect]
     Indication: CONSTIPATION
     Dosage: 1 TBSP, PRN
     Route: 048

REACTIONS (3)
  - Myocardial infarction [Not Recovered/Not Resolved]
  - Chest pain [Not Recovered/Not Resolved]
  - Pain in extremity [Not Recovered/Not Resolved]
